FAERS Safety Report 10255783 (Version 5)
Quarter: 2014Q4

REPORT INFORMATION
  Report Type: Spontaneous
  Country: US (occurrence: US)
  Receive Date: 20140624
  Receipt Date: 20141216
  Transmission Date: 20150528
  Serious: Yes (Hospitalization, Other)
  Sender: FDA-Public Use
  Company Number: US-BAYER-2014-093958

PATIENT
  Age: 83 Year
  Sex: Male
  Weight: 73 kg

DRUGS (9)
  1. TYLENOL [Concomitant]
     Active Substance: ACETAMINOPHEN
  2. STIVARGA [Suspect]
     Active Substance: REGORAFENIB
     Indication: GASTROINTESTINAL STROMAL TUMOUR
     Dosage: 120 MG, QD
     Route: 048
     Dates: start: 20140519, end: 2014
  3. ZYRTEC [CETIRIZINE HYDROCHLORIDE] [Concomitant]
  4. ADVIL [IBUPROFEN] [Concomitant]
     Active Substance: IBUPROFEN
  5. FLOMAX [MORNIFLUMATE] [Concomitant]
  6. CALCITRATE [CALCIUM] [Concomitant]
  7. VITAMIN C [ASCORBIC ACID] [Concomitant]
  8. LASIX [Concomitant]
     Active Substance: FUROSEMIDE
  9. STIVARGA [Suspect]
     Active Substance: REGORAFENIB
     Indication: SMALL INTESTINE CARCINOMA
     Dosage: 2 TABS DAILY, AT BEDTIME FOR 3 WEEKS ON AND 1 WEEK OFF
     Route: 048
     Dates: start: 2014

REACTIONS (10)
  - Blood pressure increased [Not Recovered/Not Resolved]
  - Hospitalisation [None]
  - Fatigue [Recovering/Resolving]
  - Pre-existing condition improved [Recovered/Resolved]
  - Cystitis [Unknown]
  - Blood potassium decreased [Recovering/Resolving]
  - Weight decreased [Recovering/Resolving]
  - Hepatic infection [Unknown]
  - Infection [Recovered/Resolved]
  - Muscle spasms [Recovering/Resolving]

NARRATIVE: CASE EVENT DATE: 2014
